FAERS Safety Report 23030390 (Version 1)
Quarter: 2023Q4

REPORT INFORMATION
  Report Type: Spontaneous
  Country: US (occurrence: US)
  Receive Date: 20231005
  Receipt Date: 20231005
  Transmission Date: 20240110
  Serious: Yes (Hospitalization, Other)
  Sender: FDA-Public Use
  Company Number: US-CIPLA LTD.-2023US05790

PATIENT

DRUGS (1)
  1. VILAZODONE [Suspect]
     Active Substance: VILAZODONE
     Dosage: 14.6MG/KG, UNK
     Route: 048

REACTIONS (3)
  - Accidental exposure to product [Unknown]
  - Toxicity to various agents [Recovered/Resolved]
  - Generalised tonic-clonic seizure [Recovered/Resolved]
